FAERS Safety Report 7811669-3 (Version None)
Quarter: 2011Q4

REPORT INFORMATION
  Report Type: 
  Country: None (occurrence: None)
  Receive Date: 20111013
  Receipt Date: 20111004
  Transmission Date: 20120403
  Serious: Yes (Life-Threatening, Hospitalization)
  Sender: FDA-Public Use
  Company Number: DE-CELGENEUS-062-21880-11092274

PATIENT
  Age: 60 Year
  Sex: Female

DRUGS (7)
  1. REVLIMID [Suspect]
     Indication: MULTIPLE MYELOMA
     Dosage: 5 MILLIGRAM
     Route: 048
     Dates: start: 20110208, end: 20110920
  2. PIOGLITAZONE [Suspect]
     Indication: MULTIPLE MYELOMA
     Dosage: 60 MILLIGRAM
     Route: 048
     Dates: start: 20110208, end: 20110921
  3. DEXAMETHASONE [Suspect]
     Indication: MULTIPLE MYELOMA
     Dosage: 20 MG D1, 1MG D2-D8
     Route: 048
     Dates: start: 20110208, end: 20110921
  4. ENOXAPARIN SODIUM [Concomitant]
     Indication: PROPHYLAXIS
     Dosage: 40 MILLIGRAM
     Route: 058
     Dates: start: 20110503, end: 20110926
  5. OPIPRAMOL [Concomitant]
     Indication: DEPRESSION
     Route: 065
     Dates: start: 20110921
  6. PANTOPRAZOLE SODIUM [Concomitant]
     Indication: PROPHYLAXIS
     Dosage: 40 MILLIGRAM
     Route: 048
     Dates: start: 20110208, end: 20110921
  7. TREOSULFAN [Suspect]
     Indication: MULTIPLE MYELOMA
     Dosage: 250 MILLIGRAM
     Route: 048
     Dates: start: 20110208, end: 20110920

REACTIONS (1)
  - DEPRESSION SUICIDAL [None]
